FAERS Safety Report 15111952 (Version 10)
Quarter: 2020Q1

REPORT INFORMATION
  Report Type: Spontaneous
  Country: BG (occurrence: BG)
  Receive Date: 20180705
  Receipt Date: 20200113
  Transmission Date: 20200409
  Serious: Yes (Other)
  Sender: FDA-Public Use
  Company Number: BG-MYLANLABS-2018M1047176

PATIENT
  Age: 50 Year
  Sex: Male

DRUGS (20)
  1. XGEVA [Suspect]
     Active Substance: DENOSUMAB
     Indication: PROSTATE CANCER
     Dosage: UNK
     Route: 065
     Dates: start: 20141029
  2. XGEVA [Suspect]
     Active Substance: DENOSUMAB
     Dosage: UNK
     Route: 065
  3. ENZALUTAMIDE [Suspect]
     Active Substance: ENZALUTAMIDE
     Indication: PROSTATE CANCER
     Dosage: 160 MG, ONCE DAILY (AFTER INEFFECTIVE TREATMENT NEW GENERATION IS INCLUDED ANTIANDROGEN)
  4. RADIUM 223 DICHLORIDE [Suspect]
     Active Substance: RADIUM RA-223 DICHLORIDE
     Dosage: 4.4 MEGABECQUEREL
     Route: 042
     Dates: start: 20170418
  5. RADIUM 223 DICHLORIDE [Suspect]
     Active Substance: RADIUM RA-223 DICHLORIDE
     Dosage: 4.4 MEGABECQUEREL
     Route: 042
  6. CABAZITAXEL [Suspect]
     Active Substance: CABAZITAXEL
     Indication: PROSTATE CANCER
     Dosage: UNK
     Route: 065
     Dates: start: 20160519, end: 20170126
  7. BICALUTAMIDE. [Suspect]
     Active Substance: BICALUTAMIDE
     Dosage: UNK
  8. LEUPRORELIN ACETATE [Suspect]
     Active Substance: LEUPROLIDE ACETATE
     Indication: PROSTATE CANCER METASTATIC
     Dosage: 4 APPLICATIONS, BEGIN THERAPY WHEN THERE ARE METASTASES IN THE SOFT
     Route: 065
     Dates: start: 20141029
  9. BICALUTAMIDE. [Suspect]
     Active Substance: BICALUTAMIDE
     Indication: PROSTATE CANCER
     Dosage: 50 MILLIGRAM, QD
     Route: 065
     Dates: start: 20141029
  10. LUTETIUM (LU 177) [Suspect]
     Active Substance: LUTETIUM LU-177
     Indication: PROSTATE CANCER
     Dosage: 4 APPLICATIONS;  BEGIN THERAPY WHEN IT IS UNDERSTOOD THAT THERE ARE METASTASES IN SOFT TISSUES
     Route: 065
  11. DENOSUMAB [Suspect]
     Active Substance: DENOSUMAB
     Dosage: UNK
  12. RADIUM 223 DICHLORIDE [Suspect]
     Active Substance: RADIUM RA-223 DICHLORIDE
     Dosage: 4.4 MEGABECQUEREL
     Route: 042
  13. LEUPRORELIN ACETATE [Suspect]
     Active Substance: LEUPROLIDE ACETATE
     Indication: PROSTATE CANCER
     Dosage: UNK
  14. ABIRATERONE ACETATE. [Suspect]
     Active Substance: ABIRATERONE ACETATE
     Indication: PROSTATE CANCER
     Dosage: 1000 MILLIGRAM, UNK
     Route: 048
     Dates: start: 201705
  15. ABIRATERONE. [Suspect]
     Active Substance: ABIRATERONE ACETATE
     Indication: PROSTATE CANCER
     Dosage: 1000 MG, QD
     Route: 048
     Dates: start: 201705
  16. RADIUM 223 DICHLORIDE [Suspect]
     Active Substance: RADIUM RA-223 DICHLORIDE
     Indication: PROSTATE CANCER
     Dosage: 4.4 MEGABECQUEREL
     Route: 042
     Dates: start: 20170418, end: 20170712
  17. RADIUM 223 DICHLORIDE [Suspect]
     Active Substance: RADIUM RA-223 DICHLORIDE
     Dosage: 4.4 MEGABECQUEREL
     Route: 042
     Dates: end: 20170712
  18. DENOSUMAB [Suspect]
     Active Substance: DENOSUMAB
     Indication: PROSTATE CANCER
     Dosage: UNK
     Route: 065
     Dates: start: 20141029
  19. DOCETAXEL. [Suspect]
     Active Substance: DOCETAXEL
     Indication: PROSTATE CANCER
     Dosage: 5 COURSES;  BECAUSE OF THE RISE IN PSA, CHEMOTHERAPY HAS BEGUN
     Route: 065
  20. ABIRATERONE. [Suspect]
     Active Substance: ABIRATERONE ACETATE
     Dosage: UNK

REACTIONS (10)
  - Malignant neoplasm progression [Unknown]
  - Fatigue [Unknown]
  - Prostatic specific antigen increased [Unknown]
  - Metastases to soft tissue [Unknown]
  - Prostate cancer [Unknown]
  - Drug resistance [Unknown]
  - Drug ineffective [Unknown]
  - Metastases to lung [Unknown]
  - Metastases to lymph nodes [Unknown]
  - Prostate cancer recurrent [Unknown]

NARRATIVE: CASE EVENT DATE: 201706
